FAERS Safety Report 15813538 (Version 1)
Quarter: 2019Q1

REPORT INFORMATION
  Report Type: Spontaneous
  Country: US (occurrence: US)
  Receive Date: 20190111
  Receipt Date: 20190111
  Transmission Date: 20190417
  Serious: No
  Sender: FDA-Public Use
  Company Number: US-ALLERGAN-1804363US

PATIENT
  Sex: Female

DRUGS (2)
  1. ACZONE [Suspect]
     Active Substance: DAPSONE
     Indication: ACNE
     Dosage: UNK, QD
     Route: 061
     Dates: start: 20170718, end: 20180122
  2. ACZONE [Suspect]
     Active Substance: DAPSONE
     Dosage: UNK, BID
     Dates: start: 20170718, end: 20180122

REACTIONS (3)
  - Inappropriate schedule of product administration [Unknown]
  - Drug ineffective [Unknown]
  - Product formulation issue [Unknown]

NARRATIVE: CASE EVENT DATE: 201707
